FAERS Safety Report 19079326 (Version 4)
Quarter: 2021Q3

REPORT INFORMATION
  Report Type: Report from Study
  Country: US (occurrence: US)
  Receive Date: 20210331
  Receipt Date: 20210709
  Transmission Date: 20211014
  Serious: No
  Sender: FDA-Public Use
  Company Number: NVSC2021US071022

PATIENT
  Age: 65 Year
  Sex: Female

DRUGS (3)
  1. ENTRESTO [Suspect]
     Active Substance: SACUBITRIL\VALSARTAN
     Dosage: 0.5 DF, BID
     Route: 048
  2. PREDNISONE. [Concomitant]
     Active Substance: PREDNISONE
     Indication: PRODUCT USED FOR UNKNOWN INDICATION
     Dosage: UNK
     Route: 065
     Dates: start: 202009
  3. ENTRESTO [Suspect]
     Active Substance: SACUBITRIL\VALSARTAN
     Indication: CARDIAC FAILURE
     Dosage: UNK UNK, BID
     Route: 048
     Dates: start: 20210301

REACTIONS (12)
  - Pruritus [Unknown]
  - Wrong technique in product usage process [Unknown]
  - Cough [Unknown]
  - Rash [Unknown]
  - Urticaria [Unknown]
  - Dyspnoea [Unknown]
  - Hypotension [Unknown]
  - Weight increased [Unknown]
  - Hypersensitivity [Unknown]
  - Dizziness [Unknown]
  - Sneezing [Unknown]
  - Eye pruritus [Unknown]

NARRATIVE: CASE EVENT DATE: 202103
